FAERS Safety Report 7590275-2 (Version None)
Quarter: 2011Q2

REPORT INFORMATION
  Report Type: 
  Country: None (occurrence: None)
  Receive Date: 20110627
  Receipt Date: 20110613
  Transmission Date: 20111010
  Serious: Yes (Other)
  Sender: FDA-Public Use
  Company Number: 2011P1006631

PATIENT
  Age: 75 Year
  Sex: Male
  Weight: 77.1115 kg

DRUGS (1)
  1. DESOXIMETASONE [Suspect]
     Indication: SKIN DISORDER
     Dosage: X1, TOP
     Route: 061
     Dates: start: 20110520, end: 20110520

REACTIONS (3)
  - FOREIGN BODY SENSATION IN EYES [None]
  - ACCIDENTAL EXPOSURE [None]
  - EYE DISORDER [None]
